FAERS Safety Report 5507518-9 (Version None)
Quarter: 2007Q4

REPORT INFORMATION
  Report Type: 
  Country: None (occurrence: None)
  Receive Date: 20071105
  Receipt Date: 20071105
  Transmission Date: 20080405
  Serious: Yes (Life-Threatening, Hospitalization, Disabling, Other)
  Sender: FDA-Public Use
  Company Number: None

PATIENT
  Age: 47 Year
  Sex: Female
  Weight: 54.4316 kg

DRUGS (2)
  1. CATAPRES-TTS-1 [Suspect]
     Indication: HYPERTENSION
     Dosage: CATAPRES TTS3 PATCH EVERY 7TH DAY TRANSDERMAL;  CATAPRES TTS1 PATCH EVERY 7TH DAY TRANSDERMAL
     Route: 062
     Dates: start: 20070201, end: 20071010
  2. CATAPRES-TTS-1 [Suspect]
     Indication: HYPERTENSION
     Dosage: CATAPRES TTS3 PATCH EVERY 7TH DAY TRANSDERMAL;  CATAPRES TTS1 PATCH EVERY 7TH DAY TRANSDERMAL
     Route: 062
     Dates: start: 20071010, end: 20071102

REACTIONS (12)
  - ALOPECIA [None]
  - CONSTIPATION [None]
  - DEHYDRATION [None]
  - DEPRESSION [None]
  - HYPERTENSION [None]
  - LETHARGY [None]
  - MIGRAINE [None]
  - MUSCULAR WEAKNESS [None]
  - NAUSEA [None]
  - REBOUND EFFECT [None]
  - VOMITING [None]
  - WITHDRAWAL SYNDROME [None]
